FAERS Safety Report 8317953-1 (Version None)
Quarter: 2012Q2

REPORT INFORMATION
  Report Type: 
  Country: None (occurrence: None)
  Receive Date: 20120427
  Receipt Date: 20120420
  Transmission Date: 20120825
  Serious: Yes (Hospitalization)
  Sender: FDA-Public Use
  Company Number: US-BAYER-2011-100201

PATIENT
  Age: 35 Year
  Sex: Female
  Weight: 86.168 kg

DRUGS (6)
  1. PROPRANOLOL [Concomitant]
     Indication: TACHYCARDIA
  2. ASCORBIC ACID [Concomitant]
  3. YAZ [Suspect]
     Indication: HORMONE LEVEL ABNORMAL
     Dosage: UNK
     Dates: start: 20090401, end: 20090901
  4. CALCIUM CARBONATE [Concomitant]
  5. CELEXA [Concomitant]
     Indication: DEPRESSION
  6. NSAID'S [Concomitant]

REACTIONS (1)
  - CHOLECYSTITIS [None]
